FAERS Safety Report 5023637-8 (Version None)
Quarter: 2006Q2

REPORT INFORMATION
  Report Type: 
  Country: None (occurrence: None)
  Receive Date: 20060606
  Receipt Date: 20060530
  Transmission Date: 20061013
  Serious: Yes (Hospitalization)
  Sender: FDA-Public Use
  Company Number: 2006-04-0344

PATIENT
  Age: 50 Year
  Sex: Male
  Weight: 81.6475 kg

DRUGS (1)
  1. NASONEX SCENT-FREE (MOMENTASONE FUROATE MONOHYDRATE) NASAL SUSPENSION [Suspect]
     Indication: HYPERSENSITIVITY
     Dosage: 2 SPR/NARE QD NASAL SPRAY
     Route: 045
     Dates: start: 20050501, end: 20060320

REACTIONS (11)
  - DRUG INEFFECTIVE [None]
  - EAR DISCOMFORT [None]
  - EAR PAIN [None]
  - HEADACHE [None]
  - MYELITIS TRANSVERSE [None]
  - PHARYNGEAL INFLAMMATION [None]
  - PHARYNGOLARYNGEAL PAIN [None]
  - RHINITIS [None]
  - SINUS DISORDER [None]
  - THROAT IRRITATION [None]
  - VIRAL INFECTION [None]
